FAERS Safety Report 6419936-5 (Version None)
Quarter: 2009Q4

REPORT INFORMATION
  Report Type: 
  Country: None (occurrence: None)
  Receive Date: 20091029
  Receipt Date: 20091016
  Transmission Date: 20100525
  Serious: Yes (Hospitalization)
  Sender: FDA-Public Use
  Company Number: US-ELI_LILLY_AND_COMPANY-US200910006051

PATIENT
  Sex: Male
  Weight: 80.3 kg

DRUGS (3)
  1. GEMCITABINE HCL [Suspect]
     Indication: BLADDER CANCER
     Dates: start: 20090928
  2. CETUXIMAB [Suspect]
     Indication: BLADDER CANCER
     Dosage: 985 MG, UNK
     Route: 042
     Dates: start: 20090928
  3. CISPLATIN [Suspect]
     Indication: BLADDER CANCER
     Dates: start: 20090928

REACTIONS (3)
  - BLOOD CREATININE INCREASED [None]
  - PNEUMONIA [None]
  - PYREXIA [None]
